APPROVED DRUG PRODUCT: NEOSTIGMINE METHYLSULFATE
Active Ingredient: NEOSTIGMINE METHYLSULFATE
Strength: 5MG/10ML (0.5MG/ML)
Dosage Form/Route: SOLUTION;INTRAVENOUS
Application: A212804 | Product #001 | TE Code: AP
Applicant: MEITHEAL PHARMACEUTICALS INC
Approved: Apr 5, 2021 | RLD: No | RS: No | Type: RX